FAERS Safety Report 23089599 (Version 1)
Quarter: 2023Q4

REPORT INFORMATION
  Report Type: Other
  Country: CZ (occurrence: None)
  Receive Date: 20231020
  Receipt Date: 20231020
  Transmission Date: 20240109
  Serious: Yes (Hospitalization)
  Sender: FDA-Public Use
  Company Number: CZ-ROCHE-3442114

PATIENT
  Age: 55 Year
  Sex: Male

DRUGS (1)
  1. ROZLYTREK [Suspect]
     Active Substance: ENTRECTINIB
     Indication: Non-small cell lung cancer
     Dosage: PER DAY
     Route: 065
     Dates: start: 20230222

REACTIONS (6)
  - Dyspnoea [Recovered/Resolved]
  - Altered state of consciousness [Recovered/Resolved]
  - Pericardial effusion [Recovered/Resolved]
  - Peripheral swelling [Not Recovered/Not Resolved]
  - Pleural effusion [Not Recovered/Not Resolved]
  - Therapy cessation [Unknown]
